FAERS Safety Report 9162109 (Version 1)
Quarter: 2013Q1

REPORT INFORMATION
  Report Type: Spontaneous
  Country: GB (occurrence: None)
  Receive Date: 20130220
  Receipt Date: 20130220
  Transmission Date: 20140127
  Serious: Yes (Hospitalization, Other)
  Sender: FDA-Public Use
  Company Number: 2013SUN00118

PATIENT
  Age: 71 Year
  Sex: Male
  Weight: 76.2 kg

DRUGS (2)
  1. OLANZAPINE [Suspect]
     Indication: PRODUCT USED FOR UNKNOWN INDICATION
  2. VENLAFAXINE (VENLAFAXINE) [Suspect]
     Indication: PRODUCT USED FOR UNKNOWN INDICATION

REACTIONS (12)
  - Obsessive-compulsive disorder [None]
  - Balance disorder [None]
  - Joint swelling [None]
  - Abnormal behaviour [None]
  - Anger [None]
  - Condition aggravated [None]
  - Discomfort [None]
  - Agitation [None]
  - Insomnia [None]
  - Gait disturbance [None]
  - Euphoric mood [None]
  - Crying [None]
